FAERS Safety Report 10954315 (Version 1)
Quarter: 2015Q1

REPORT INFORMATION
  Report Type: Spontaneous
  Country: AU (occurrence: AU)
  Receive Date: 20150325
  Receipt Date: 20150325
  Transmission Date: 20150721
  Serious: Yes (Other)
  Sender: FDA-Public Use
  Company Number: AU-ASTRAZENECA-2014SE91502

PATIENT
  Age: 76 Year
  Sex: Male

DRUGS (3)
  1. ZOLADEX [Suspect]
     Active Substance: GOSERELIN ACETATE
     Dosage: EVERY 3 MONTHS
     Route: 058
  2. COSUDEX [Suspect]
     Active Substance: BICALUTAMIDE
     Dosage: 1 TABLET,EVERYDAY
     Route: 048
  3. ANDROCUR [Suspect]
     Active Substance: CYPROTERONE ACETATE
     Route: 065

REACTIONS (2)
  - Malignant neoplasm progression [Not Recovered/Not Resolved]
  - Hot flush [Recovered/Resolved]
